FAERS Safety Report 6083678-9 (Version None)
Quarter: 2009Q1

REPORT INFORMATION
  Report Type: 
  Country: None (occurrence: None)
  Receive Date: 20090205
  Receipt Date: 20080707
  Transmission Date: 20090719
  Serious: Yes (Hospitalization)
  Sender: FDA-Public Use
  Company Number: A03200802726

PATIENT
  Age: 82 Year
  Sex: Male

DRUGS (6)
  1. ELIGARD [Suspect]
     Indication: PROSTATE CANCER
     Dosage: 45 MG ONCE - SUBCUTANEOUS
     Route: 058
     Dates: start: 20080703, end: 20080703
  2. ASPIRIN [Concomitant]
  3. GLYBURIDE [Concomitant]
  4. HYDROCHLOROTHIAZIDE [Concomitant]
  5. TERAZOSIN HYDROCHLORIDE [Concomitant]
  6. LISINOPRIL [Concomitant]

REACTIONS (6)
  - FATIGUE [None]
  - HEADACHE [None]
  - LETHARGY [None]
  - NAUSEA [None]
  - PITUITARY HAEMORRHAGE [None]
  - VISUAL IMPAIRMENT [None]
